FAERS Safety Report 11215334 (Version 1)
Quarter: 2015Q2

REPORT INFORMATION
  Report Type: Spontaneous
  Country: GB (occurrence: None)
  Receive Date: 20150622
  Receipt Date: 20150622
  Transmission Date: 20150821
  Serious: Yes (Other)
  Sender: FDA-Public Use
  Company Number: DEP_03042_2015

PATIENT
  Age: 47 Year
  Sex: Female
  Weight: 51.03 kg

DRUGS (13)
  1. CERELLE (NICERGOLINE) [Concomitant]
     Active Substance: NICERGOLINE
  2. OMEPRAZOLE. [Concomitant]
     Active Substance: OMEPRAZOLE
  3. TRIMETHOPRIM. [Concomitant]
     Active Substance: TRIMETHOPRIM
  4. TAPENTADOL [Suspect]
     Active Substance: TAPENTADOL
     Indication: PRODUCT USED FOR UNKNOWN INDICATION
     Dosage: DF
     Dates: start: 20150429
  5. PREDNISOLONE. [Concomitant]
     Active Substance: PREDNISOLONE
  6. SENNA [Concomitant]
     Active Substance: SENNA LEAF\SENNOSIDES\SENNOSIDES A AND B
  7. ADCAL [Concomitant]
  8. DIHYDROCODEINE [Concomitant]
     Active Substance: DIHYDROCODEINE
  9. DOCUSATE SODIUM. [Concomitant]
     Active Substance: DOCUSATE SODIUM
  10. DIAZEPAM. [Concomitant]
     Active Substance: DIAZEPAM
  11. FOSFOMYCIN [Concomitant]
     Active Substance: FOSFOMYCIN
  12. PARACETAMOL [Concomitant]
     Active Substance: ACETAMINOPHEN
  13. VERSATIS [Concomitant]
     Active Substance: LIDOCAINE

REACTIONS (11)
  - Chest pain [None]
  - Pallor [None]
  - Cold sweat [None]
  - Nightmare [None]
  - Hyperhidrosis [None]
  - Malaise [None]
  - Fatigue [None]
  - Palpitations [None]
  - Diarrhoea [None]
  - Insomnia [None]
  - Myalgia [None]

NARRATIVE: CASE EVENT DATE: 20150529
